FAERS Safety Report 8573359-1 (Version None)
Quarter: 2012Q2

REPORT INFORMATION
  Report Type: 
  Country: None (occurrence: None)
  Receive Date: 20120423
  Receipt Date: 20110601
  Transmission Date: 20120825
  Serious: Yes (Hospitalization)
  Sender: FDA-Public Use
  Company Number: FK201101099

PATIENT
  Age: 50 Year
  Sex: Female

DRUGS (1)
  1. HEPARIN SODIUM [Suspect]
     Indication: ANTICOAGULANT THERAPY
     Dosage: 8000 USP UNITS, IVP
     Route: 042

REACTIONS (1)
  - CATHETER SITE HAEMORRHAGE [None]
